FAERS Safety Report 4625529-2 (Version None)
Quarter: 2005Q2

REPORT INFORMATION
  Report Type: 
  Country: None (occurrence: None)
  Receive Date: 20050401
  Receipt Date: 20041216
  Transmission Date: 20051028
  Serious: Yes (Death, Hospitalization)
  Sender: FDA-Public Use
  Company Number: GBWYE289017DEC04

PATIENT
  Sex: Female

DRUGS (9)
  1. ENBREL [Suspect]
     Indication: RHEUMATOID ARTHRITIS
     Route: 058
     Dates: start: 20040201, end: 20040818
  2. PREDNISOLONE [Concomitant]
     Indication: RHEUMATOID ARTHRITIS
     Route: 048
  3. ACTONEL (PROCTOR + GAMBLE) [Concomitant]
     Indication: OSTEOPOROSIS
     Route: 048
  4. CALCICHEW [Concomitant]
     Route: 048
  5. ACCUPRIL [Concomitant]
     Route: 048
  6. FERROUS SULFATE TAB [Concomitant]
     Route: 048
  7. METHOTREXATE [Concomitant]
  8. CO-DYDRAMOL [Concomitant]
  9. HYDROXOCOBALAMIN [Concomitant]

REACTIONS (11)
  - BETA HAEMOLYTIC STREPTOCOCCAL INFECTION [None]
  - CANDIDIASIS [None]
  - CLOSTRIDIUM COLITIS [None]
  - DEHYDRATION [None]
  - IMPAIRED HEALING [None]
  - INFECTED SKIN ULCER [None]
  - MALAISE [None]
  - MALNUTRITION [None]
  - PNEUMONIA [None]
  - PSEUDOMONAS INFECTION [None]
  - VASCULITIS [None]
